FAERS Safety Report 25728516 (Version 4)
Quarter: 2025Q4

REPORT INFORMATION
  Report Type: Report from Study
  Country: EU (occurrence: EU)
  Receive Date: 20250826
  Receipt Date: 20251113
  Transmission Date: 20260117
  Serious: Yes (Death, Life-Threatening, Hospitalization, Other)
  Sender: IOVANCE BIOTHERAPEUTICS MANUFACTURING LLC
  Company Number: None

PATIENT

DRUGS (97)
  1. ALDESLEUKIN [Suspect]
     Active Substance: ALDESLEUKIN
     Indication: Product used for unknown indication
     Dosage: 78
     Route: 065
     Dates: start: 20250526, end: 20250527
  2. PEMBROLIZUMAB [Suspect]
     Active Substance: PEMBROLIZUMAB
     Indication: Product used for unknown indication
     Dosage: 200
     Route: 065
     Dates: start: 20250410
  3. PEMBROLIZUMAB [Suspect]
     Active Substance: PEMBROLIZUMAB
     Dosage: 400
     Route: 065
     Dates: start: 20250428
  4. CYCLOPHOSPHAMIDE [Suspect]
     Active Substance: CYCLOPHOSPHAMIDE
     Indication: Product used for unknown indication
     Dosage: 3900
     Route: 065
     Dates: start: 20250521
  5. CYCLOPHOSPHAMIDE [Suspect]
     Active Substance: CYCLOPHOSPHAMIDE
     Dosage: 3900
     Route: 065
     Dates: start: 20250522
  6. FLUDARABINE [Suspect]
     Active Substance: FLUDARABINE PHOSPHATE
     Indication: Product used for unknown indication
     Dosage: 44
     Route: 065
     Dates: start: 20250521
  7. FLUDARABINE [Suspect]
     Active Substance: FLUDARABINE PHOSPHATE
     Dosage: 44
     Route: 065
     Dates: start: 20250522
  8. FLUDARABINE [Suspect]
     Active Substance: FLUDARABINE PHOSPHATE
     Dosage: 44
     Route: 065
     Dates: start: 20250523
  9. FLUDARABINE [Suspect]
     Active Substance: FLUDARABINE PHOSPHATE
     Dosage: 44
     Route: 065
     Dates: start: 20250524
  10. FLUDARABINE [Suspect]
     Active Substance: FLUDARABINE PHOSPHATE
     Dosage: 44
     Route: 065
     Dates: start: 20250525
  11. LIFILEUCEL [Suspect]
     Active Substance: LIFILEUCEL
     Indication: Product used for unknown indication
     Dosage: 300
     Route: 065
     Dates: start: 20250526, end: 20250526
  12. ZOLPIDEM [Concomitant]
     Active Substance: ZOLPIDEM TARTRATE
     Indication: Product used for unknown indication
     Dosage: 10 MG, PRN (AS NEEDED)
     Route: 048
     Dates: start: 2017
  13. ZOLPIDEM [Concomitant]
     Active Substance: ZOLPIDEM TARTRATE
     Dosage: 10 MG, PRN (AS NEEDED)
     Dates: start: 2017
  14. ACETAMINOPHEN [Concomitant]
     Active Substance: ACETAMINOPHEN
     Indication: Product used for unknown indication
     Dosage: 1 GRAM, PRN (AS NEEDED)
     Route: 048
     Dates: start: 20250401
  15. ACETAMINOPHEN [Concomitant]
     Active Substance: ACETAMINOPHEN
     Dosage: 1 GRAM, PRN (AS NEEDED)
     Route: 042
     Dates: start: 20250521, end: 20250524
  16. ACETAMINOPHEN [Concomitant]
     Active Substance: ACETAMINOPHEN
     Dosage: 500 MG, OTHER~6 TIMES DAILY
     Route: 042
     Dates: start: 20250524, end: 20250529
  17. ACETAMINOPHEN [Concomitant]
     Active Substance: ACETAMINOPHEN
     Dosage: 1 GRAM, ONCE
     Route: 042
     Dates: start: 20250526, end: 20250526
  18. ACETAMINOPHEN [Concomitant]
     Active Substance: ACETAMINOPHEN
     Dosage: 500 MG, ONCE
     Route: 042
     Dates: start: 20250526, end: 20250526
  19. ACETAMINOPHEN [Concomitant]
     Active Substance: ACETAMINOPHEN
     Dosage: 500 MG, ONCE
     Route: 042
     Dates: start: 20250527, end: 20250527
  20. ACETAMINOPHEN [Concomitant]
     Active Substance: ACETAMINOPHEN
     Dosage: 1 GRAM, PRN (AS NEEDED)
     Route: 042
     Dates: start: 20250529, end: 20250602
  21. ACETAMINOPHEN [Concomitant]
     Active Substance: ACETAMINOPHEN
     Dosage: 1 GRAM, PRN (AS NEEDED)
     Route: 042
     Dates: start: 20250531, end: 20250609
  22. ACETAMINOPHEN [Concomitant]
     Active Substance: ACETAMINOPHEN
     Dosage: 1 GRAM, PRN (AS NEEDED)
     Route: 042
     Dates: start: 20250611
  23. DICLOFENAC DIETHYLAMINE [Concomitant]
     Active Substance: DICLOFENAC DIETHYLAMINE
     Indication: Product used for unknown indication
     Dosage: 1 APPLICATION, PRN (AS NEEDED)
     Route: 061
     Dates: start: 20250428
  24. CIPROFLOXACIN [Concomitant]
     Active Substance: CIPROFLOXACIN
     Indication: Product used for unknown indication
     Dosage: 500 MG, BID (TWICE DAILY)
     Route: 048
     Dates: start: 20250517, end: 20250523
  25. CIPROFLOXACIN [Concomitant]
     Active Substance: CIPROFLOXACIN
     Dosage: 500 MG, BID (TWICE DAILY)
     Route: 042
     Dates: start: 20250529, end: 20250602
  26. ACYCLOVIR [Concomitant]
     Active Substance: ACYCLOVIR
     Indication: Product used for unknown indication
     Dosage: 200 MG, BID (TWICE DAILY)
     Route: 048
     Dates: start: 20250521, end: 20250618
  27. ACYCLOVIR [Concomitant]
     Active Substance: ACYCLOVIR
     Dosage: 200 MG, BID (TWICE DAILY)
     Route: 048
     Dates: start: 20250704
  28. AKYNZEO (NETUPITANT\PALONOSETRON HYDROCHLORIDE) [Concomitant]
     Active Substance: NETUPITANT\PALONOSETRON HYDROCHLORIDE
     Indication: Product used for unknown indication
     Dosage: 300 MG, ONCE
     Route: 048
     Dates: start: 20250521, end: 20250521
  29. COTRIMOXAZOLE [Concomitant]
     Active Substance: SULFAMETHOXAZOLE\TRIMETHOPRIM
     Indication: Product used for unknown indication
     Dosage: 800 MG, OTHER~3 TIMES PER WEEK
     Dates: start: 20250521
  30. FLUCONAZOLE [Concomitant]
     Active Substance: FLUCONAZOLE
     Indication: Product used for unknown indication
     Dosage: 50 MILLIGRAM, QD
     Route: 048
     Dates: start: 20250521, end: 20250605
  31. FLUCONAZOLE [Concomitant]
     Active Substance: FLUCONAZOLE
     Dosage: 50 MG, QD
     Dates: start: 20250521, end: 20250605
  32. FUROSEMIDE [Concomitant]
     Active Substance: FUROSEMIDE
     Indication: Product used for unknown indication
     Dosage: 40 MG, ONCE
     Route: 042
     Dates: start: 20250521, end: 20250521
  33. FUROSEMIDE [Concomitant]
     Active Substance: FUROSEMIDE
     Dosage: 40 MG, ONCE
     Route: 042
     Dates: start: 20250525, end: 20250525
  34. FUROSEMIDE [Concomitant]
     Active Substance: FUROSEMIDE
     Dosage: 40 MG, ONCE
     Route: 042
     Dates: start: 20250526, end: 20250526
  35. FUROSEMIDE [Concomitant]
     Active Substance: FUROSEMIDE
     Dosage: 20 MG, ONCE
     Route: 042
     Dates: start: 20250528, end: 20250529
  36. FUROSEMIDE [Concomitant]
     Active Substance: FUROSEMIDE
     Dosage: 20 MG, ONCE
     Route: 042
     Dates: start: 20250603, end: 20250603
  37. FUROSEMIDE [Concomitant]
     Active Substance: FUROSEMIDE
     Dosage: 20 MG, ONCE
     Route: 042
     Dates: start: 20250604, end: 20250604
  38. FUROSEMIDE [Concomitant]
     Active Substance: FUROSEMIDE
     Dosage: 20 MG, ONCE
     Route: 042
     Dates: start: 20250611, end: 20250611
  39. MESNA [Concomitant]
     Active Substance: MESNA
     Indication: Product used for unknown indication
     Dosage: 1000
     Route: 042
     Dates: start: 20250521, end: 20250521
  40. MESNA [Concomitant]
     Active Substance: MESNA
     Dosage: 1000 MG, OTHER~FOUR TIMES DAILY
     Route: 042
     Dates: start: 20250521, end: 20250522
  41. MESNA [Concomitant]
     Active Substance: MESNA
     Dosage: 1000
     Route: 042
     Dates: start: 20250522, end: 20250522
  42. SODIUM CHLORIDE [Concomitant]
     Active Substance: SODIUM CHLORIDE
     Indication: Product used for unknown indication
     Dosage: 1000 ML, BID (TWICE DAILY)
     Route: 042
     Dates: start: 20250521, end: 20250521
  43. SODIUM CHLORIDE [Concomitant]
     Active Substance: SODIUM CHLORIDE
     Dosage: 1000 MILLILITER, QD
     Route: 042
     Dates: start: 20250522, end: 20250525
  44. SODIUM CHLORIDE [Concomitant]
     Active Substance: SODIUM CHLORIDE
     Dosage: 250 ML, CONTINUOUS
     Route: 042
     Dates: start: 20250526, end: 20250526
  45. ALIZAPRIDE HYDROCHLORIDE [Concomitant]
     Active Substance: ALIZAPRIDE HYDROCHLORIDE
     Indication: Product used for unknown indication
     Dosage: 50 MG, PRN (AS NEEDED)
     Route: 042
     Dates: start: 20250522, end: 20250523
  46. ALIZAPRIDE HYDROCHLORIDE [Concomitant]
     Active Substance: ALIZAPRIDE HYDROCHLORIDE
     Dosage: 50 MG, PRN (AS NEEDED)
     Dates: start: 20250522, end: 20250523
  47. CEFTAZIDIME [Concomitant]
     Active Substance: CEFTAZIDIME
     Indication: Product used for unknown indication
     Dosage: 2 GRAM, TID
     Route: 042
     Dates: start: 20250523, end: 20250529
  48. CEFTAZIDIME [Concomitant]
     Active Substance: CEFTAZIDIME
     Dosage: 2 GRAM, TID
     Route: 042
     Dates: start: 20250602, end: 20250603
  49. PANTOPRAZOLE [Concomitant]
     Active Substance: PANTOPRAZOLE
     Indication: Product used for unknown indication
     Dosage: 40 MILLIGRAM, QD
     Route: 042
     Dates: start: 20250523, end: 20250609
  50. VANCOMYCIN [Concomitant]
     Active Substance: VANCOMYCIN
     Indication: Product used for unknown indication
     Dosage: 1200 MG, BID (TWICE DAILY)
     Route: 042
     Dates: start: 20250523, end: 20250529
  51. VANCOMYCIN [Concomitant]
     Active Substance: VANCOMYCIN
     Dosage: 1200 MG, BID (TWICE DAILY)
     Route: 042
     Dates: start: 20250602, end: 20250604
  52. DICLOFENAC DIETHYLAMINE [Concomitant]
     Active Substance: DICLOFENAC DIETHYLAMINE
     Indication: Product used for unknown indication
     Dosage: 75 MG, BID (TWICE DAILY)
     Route: 042
     Dates: start: 20250523, end: 20250526
  53. DICLOFENAC DIETHYLAMINE [Concomitant]
     Active Substance: DICLOFENAC DIETHYLAMINE
     Dosage: 75 MILLIGRAM, PRN
     Route: 042
     Dates: start: 20250602, end: 20250609
  54. DESLORATADINE [Concomitant]
     Active Substance: DESLORATADINE
     Indication: Product used for unknown indication
     Dosage: 5 MG, ONCE
     Route: 048
     Dates: start: 20250526, end: 20250526
  55. DESLORATADINE [Concomitant]
     Active Substance: DESLORATADINE
     Dosage: 5 MG, ONCE
     Dates: start: 20250526, end: 20250526
  56. ONDANSETRON [Concomitant]
     Active Substance: ONDANSETRON
     Indication: Product used for unknown indication
     Dosage: 8 MG, ONCE
     Route: 042
     Dates: start: 20250526, end: 20250526
  57. ONDANSETRON [Concomitant]
     Active Substance: ONDANSETRON
     Dosage: 8 MG, ONCE
     Route: 042
     Dates: start: 20250527, end: 20250527
  58. OXYGEN [Concomitant]
     Active Substance: OXYGEN
     Indication: Product used for unknown indication
     Dosage: NA OTHER~L/MIN, PRN (AS NEEDED)
     Dates: start: 20250526, end: 20250530
  59. MEPERIDINE HYDROCHLORIDE [Concomitant]
     Active Substance: MEPERIDINE HYDROCHLORIDE
     Indication: Product used for unknown indication
     Dosage: 12.5 MG, BIS
     Route: 042
     Dates: start: 20250526, end: 20250526
  60. MEPERIDINE HYDROCHLORIDE [Concomitant]
     Active Substance: MEPERIDINE HYDROCHLORIDE
     Dosage: 12.5 MG, BIS
     Route: 042
     Dates: start: 20250527, end: 20250527
  61. POTASSIUM [Concomitant]
     Active Substance: POTASSIUM
     Indication: Product used for unknown indication
     Dosage: 40 MEQ, CONTINUOUS
     Dates: start: 20250526, end: 20250526
  62. POTASSIUM [Concomitant]
     Active Substance: POTASSIUM
     Dosage: 1 DOSAGE FORM
     Route: 048
     Dates: start: 20250605, end: 20250608
  63. FILGRASTIM [Concomitant]
     Active Substance: FILGRASTIM
     Indication: Product used for unknown indication
     Dosage: 0.3 MILLIGRAM, QD
     Route: 058
     Dates: start: 20250527, end: 20250606
  64. FILGRASTIM [Concomitant]
     Active Substance: FILGRASTIM
     Dosage: 0.3 MG, QD
     Dates: start: 20250527, end: 20250606
  65. DEXTROSE [Concomitant]
     Active Substance: DEXTROSE MONOHYDRATE
     Indication: Product used for unknown indication
     Dosage: 50 ML, BIS
     Dates: start: 20250527, end: 20250527
  66. MOVICOL [Concomitant]
     Active Substance: POLYETHYLENE GLYCOL 3350\POTASSIUM CHLORIDE\SODIUM BICARBONATE\SODIUM CHLORIDE
     Indication: Product used for unknown indication
     Dosage: 13.8 GRAM, PRN (AS NEEDED)
     Route: 048
     Dates: start: 20250527, end: 20250602
  67. MENTHOL [Concomitant]
     Active Substance: MENTHOL
     Indication: Product used for unknown indication
     Dosage: 5 PERCENTAGE, PRN (AS NEEDED)
     Route: 061
     Dates: start: 20250530, end: 20250609
  68. FOSFOR [Concomitant]
     Indication: Product used for unknown indication
     Dosage: 1.936 GRAM, QD
     Route: 048
     Dates: start: 20250531, end: 20250601
  69. FOSFOR [Concomitant]
     Dosage: 1.936 GRAM, QD
     Dates: start: 20250531, end: 20250601
  70. PLATELETS [Concomitant]
     Active Substance: HUMAN PLATELET, ALLOGENIC
     Indication: Product used for unknown indication
     Dosage: 1 OTHER~UNIT, ONCE
     Dates: start: 20250531, end: 20250531
  71. PLATELETS [Concomitant]
     Active Substance: HUMAN PLATELET, ALLOGENIC
     Dosage: 1 OTHER~UNIT, ONCE
     Route: 042
     Dates: start: 20250602, end: 20250602
  72. PIPERACILLIN AND TAZOBACTAM [Concomitant]
     Active Substance: PIPERACILLIN SODIUM\TAZOBACTAM SODIUM
     Indication: Product used for unknown indication
     Dosage: 4 GRAM, OTHER~4 TIMES DAILY
     Dates: start: 20250603, end: 20250609
  73. PIPERACILLIN AND TAZOBACTAM [Concomitant]
     Active Substance: PIPERACILLIN SODIUM\TAZOBACTAM SODIUM
     Dosage: 4 GRAM, OTHER~4 TIMES DAILY
     Route: 042
     Dates: start: 20250612, end: 20250615
  74. PIPERACILLIN AND TAZOBACTAM [Concomitant]
     Active Substance: PIPERACILLIN SODIUM\TAZOBACTAM SODIUM
     Dosage: 4 GRAM, OTHER~4 TIMES DAILY
     Route: 042
     Dates: start: 20250627, end: 20250629
  75. MAGNESIUM SULFATE [Concomitant]
     Active Substance: MAGNESIUM SULFATE
     Indication: Product used for unknown indication
     Dosage: 12 OTHER~MMOL, ONCE
     Dates: start: 20250604, end: 20250605
  76. DICLOFENAC [Concomitant]
     Active Substance: DICLOFENAC
     Indication: Product used for unknown indication
     Dosage: 75 MG, BID (TWICE DAILY)
     Dates: start: 20250611, end: 20250616
  77. DEXAMETHASONE [Concomitant]
     Active Substance: DEXAMETHASONE
     Indication: Product used for unknown indication
     Dosage: 0.4 ML, INTERMITTENT
     Dates: start: 20250611
  78. DEXPANTHENOL [Concomitant]
     Active Substance: DEXPANTHENOL
     Indication: Product used for unknown indication
     Dosage: 20 MG, BID (TWICE DAILY)
     Route: 048
     Dates: start: 20250611
  79. NOVALGIN (METAMIZOLE SODIUM) [Concomitant]
     Active Substance: METAMIZOLE SODIUM
     Indication: Product used for unknown indication
     Dosage: 1 GRAM, PRN (AS NEEDED)
     Dates: start: 20250612
  80. ASPIRIN LYSINE [Concomitant]
     Active Substance: ASPIRIN LYSINE
     Indication: Product used for unknown indication
     Dosage: 500 MG, PRN (AS NEEDED)
     Dates: start: 20250614, end: 20250615
  81. INNOHEP [Concomitant]
     Active Substance: TINZAPARIN SODIUM
     Indication: Product used for unknown indication
     Dosage: 3500 IU, QD
     Dates: start: 20250615, end: 20250626
  82. XANAX [Concomitant]
     Active Substance: ALPRAZOLAM
     Indication: Product used for unknown indication
     Dosage: 1 MG, PRN (AS NEEDED)
     Dates: start: 20250615
  83. BUMETANIDE [Concomitant]
     Active Substance: BUMETANIDE
     Indication: Product used for unknown indication
     Dosage: 2 MG, ONCE
     Dates: start: 20250617, end: 20250617
  84. BUMETANIDE [Concomitant]
     Active Substance: BUMETANIDE
     Dosage: 2 MG, ONCE
     Route: 042
     Dates: start: 20250620, end: 20250622
  85. SPIRONOLACTONE [Concomitant]
     Active Substance: SPIRONOLACTONE
     Indication: Product used for unknown indication
     Dosage: 25 MG, QD
     Route: 048
     Dates: start: 20250617, end: 20250625
  86. GANCICLOVIR [Concomitant]
     Active Substance: GANCICLOVIR
     Indication: Product used for unknown indication
     Dosage: 320 MG, BID (TWICE DAILY)
     Dates: start: 20250618, end: 20250704
  87. PRIVIGEN [Concomitant]
     Active Substance: HUMAN IMMUNOGLOBULIN G
     Indication: Product used for unknown indication
     Dosage: 25 GRAM, QD
     Dates: start: 20250618, end: 20250629
  88. REMERGON [Concomitant]
     Active Substance: MIRTAZAPINE
     Indication: Product used for unknown indication
     Dosage: 15 MG, QD
     Dates: start: 20250619
  89. ARANESP [Concomitant]
     Active Substance: DARBEPOETIN ALFA
     Indication: Product used for unknown indication
     Dosage: 500 MCG, ONCE
     Dates: start: 20250620, end: 20250620
  90. ARANESP [Concomitant]
     Active Substance: DARBEPOETIN ALFA
     Dosage: 500 MCG, ONCE
     Route: 058
     Dates: start: 20250710, end: 20250710
  91. VALGANCICLOVIR [Concomitant]
     Active Substance: VALGANCICLOVIR
     Indication: Product used for unknown indication
     Dosage: 450 MILLIGRAM, QD
     Route: 048
     Dates: start: 20250704
  92. HUMAN RED BLOOD CELL [Concomitant]
     Active Substance: HUMAN RED BLOOD CELL
     Indication: Product used for unknown indication
     Dosage: 1 OTHER~UNIT, ONCE
     Route: 042
     Dates: start: 20250601, end: 20250601
  93. HUMAN RED BLOOD CELL [Concomitant]
     Active Substance: HUMAN RED BLOOD CELL
     Dosage: 1 OTHER~UNIT, ONCE
     Route: 042
     Dates: start: 20250603, end: 20250603
  94. DOMPERIDONE\PANTOPRAZOLE SODIUM [Concomitant]
     Active Substance: DOMPERIDONE\PANTOPRAZOLE SODIUM
     Indication: Product used for unknown indication
     Dosage: 20 MG, BID (TWICE DAILY)
     Route: 065
     Dates: start: 20250611
  95. TOCILIZUMAB [Concomitant]
     Active Substance: TOCILIZUMAB
     Indication: Product used for unknown indication
     Dosage: 6 OTHER~MG/KG, ONCE
     Route: 042
     Dates: start: 20250702, end: 20250702
  96. TOCILIZUMAB [Concomitant]
     Active Substance: TOCILIZUMAB
     Dosage: 6 OTHER~MG/KG, ONCE
     Route: 042
     Dates: start: 20250615, end: 20250615
  97. ANAKINRA [Concomitant]
     Active Substance: ANAKINRA
     Indication: Product used for unknown indication
     Route: 065

REACTIONS (13)
  - Human herpesvirus 6 encephalitis [Fatal]
  - Cytomegalovirus infection reactivation [Not Recovered/Not Resolved]
  - Haemophagocytic lymphohistiocytosis [Not Recovered/Not Resolved]
  - Pericardial effusion [Recovered/Resolved]
  - Inappropriate antidiuretic hormone secretion [Unknown]
  - Pulmonary oedema [Unknown]
  - Pyrexia [Unknown]
  - Neutropenia [Unknown]
  - Pleural effusion [Unknown]
  - Pericardial effusion [Unknown]
  - Pericarditis [Unknown]
  - Thrombocytopenia [Unknown]
  - Leukopenia [Unknown]

NARRATIVE: CASE EVENT DATE: 20250527
